FAERS Safety Report 23226614 (Version 2)
Quarter: 2023Q4

REPORT INFORMATION
  Report Type: Spontaneous
  Country: TR (occurrence: TR)
  Receive Date: 20231124
  Receipt Date: 20231218
  Transmission Date: 20240110
  Serious: Yes (Other)
  Sender: FDA-Public Use
  Company Number: TR-002147023-NVSC2023TR249338

PATIENT
  Sex: Male

DRUGS (1)
  1. TRILEPTAL [Suspect]
     Active Substance: OXCARBAZEPINE
     Indication: Moyamoya disease
     Dosage: UNK (FOR ABOUT 22-23 YEARS)
     Route: 065

REACTIONS (5)
  - Seizure [Unknown]
  - Moyamoya disease [Unknown]
  - Disease recurrence [Unknown]
  - Product availability issue [Unknown]
  - Off label use [Unknown]
